FAERS Safety Report 4445489-7 (Version None)
Quarter: 2004Q3

REPORT INFORMATION
  Report Type: 
  Country: None (occurrence: None)
  Receive Date: 20040812
  Receipt Date: 20040527
  Transmission Date: 20050211
  Serious: Yes (Other)
  Sender: FDA-Public Use
  Company Number: 200414119US

PATIENT
  Age: 79 Year
  Sex: Female

DRUGS (3)
  1. LASIX [Suspect]
     Indication: OEDEMA
  2. NAMENDA [Suspect]
     Indication: DEMENTIA
     Dosage: 10 MG QD PO
     Route: 048
     Dates: start: 20040121
  3. METOLAZONE (ZAROLOXYN) [Suspect]

REACTIONS (1)
  - HYPONATRAEMIA [None]
